FAERS Safety Report 20201672 (Version 1)
Quarter: 2021Q4

REPORT INFORMATION
  Report Type: Spontaneous
  Country: PL (occurrence: PL)
  Receive Date: 20211217
  Receipt Date: 20211217
  Transmission Date: 20220303
  Serious: Yes (Other)
  Sender: FDA-Public Use
  Company Number: PL-002147023-NVSC2021PL269832

PATIENT
  Age: 47 Year
  Sex: Male

DRUGS (4)
  1. CYTARABINE [Suspect]
     Active Substance: CYTARABINE
     Dosage: DAYS 1-7
     Route: 065
  2. MIDOSTAURIN [Suspect]
     Active Substance: MIDOSTAURIN
     Indication: Acute myeloid leukaemia
     Dosage: 2X50 MG/DAILY (DAYS 8-21)
     Route: 048
  3. CLADRIBINE [Concomitant]
     Active Substance: CLADRIBINE
     Dosage: 5 MG/M2 (1-5)
     Route: 065
  4. DAUNORUBICIN [Concomitant]
     Active Substance: DAUNORUBICIN
     Dosage: 60 MG/M2 (1-2)
     Route: 065

REACTIONS (7)
  - Bone marrow failure [Unknown]
  - Escherichia bacteraemia [Unknown]
  - Skin lesion [Unknown]
  - Agranulocytosis [Unknown]
  - Pyrexia [Unknown]
  - Anal inflammation [Unknown]
  - Off label use [Unknown]
